FAERS Safety Report 23065337 (Version 2)
Quarter: 2023Q4

REPORT INFORMATION
  Report Type: Spontaneous
  Country: US (occurrence: None)
  Receive Date: 20231013
  Receipt Date: 20231229
  Transmission Date: 20240110
  Serious: No
  Sender: FDA-Public Use
  Company Number: 2023A228921

PATIENT

DRUGS (1)
  1. BYDUREON BCISE [Suspect]
     Active Substance: EXENATIDE
     Indication: Diabetes mellitus
     Dosage: 2.0MG AS REQUIRED

REACTIONS (14)
  - Rhinorrhoea [Unknown]
  - Diabetes mellitus inadequate control [Unknown]
  - Lacrimation increased [Unknown]
  - Ill-defined disorder [Unknown]
  - Multiple allergies [Unknown]
  - Wrong technique in device usage process [Unknown]
  - Drug dose omission by device [Unknown]
  - Incorrect dose administered by device [Unknown]
  - Inappropriate schedule of product administration [Unknown]
  - Product use issue [Unknown]
  - Device use issue [Unknown]
  - Device defective [Unknown]
  - Product communication issue [Unknown]
  - Device issue [Unknown]
